FAERS Safety Report 6367743-4 (Version None)
Quarter: 2009Q3

REPORT INFORMATION
  Report Type: 
  Country: None (occurrence: None)
  Receive Date: 20090921
  Receipt Date: 20090917
  Transmission Date: 20100115
  Serious: Yes (Death)
  Sender: FDA-Public Use
  Company Number: PHHO2009ZA11476

PATIENT
  Sex: Female
  Weight: 58.1 kg

DRUGS (1)
  1. ALISKIREN ALI+TAB+CVR [Suspect]
     Indication: CARDIOVASCULAR DISORDER
     Dosage: CODE NOT BROKEN
     Route: 048
     Dates: start: 20080617, end: 20090814

REACTIONS (2)
  - DYSPNOEA [None]
  - MYOCARDIAL INFARCTION [None]
